FAERS Safety Report 8756913 (Version 2)
Quarter: 2012Q4

REPORT INFORMATION
  Report Type: 
  Country: None (occurrence: None)
  Receive Date: 20120828
  Receipt Date: 20121023
  Transmission Date: 20130627
  Serious: Yes (Hospitalization)
  Sender: FDA-Public Use
  Company Number: RS-PFIZER INC-2012208874

PATIENT
  Age: 64 Year
  Sex: Female

DRUGS (3)
  1. SUTENT [Suspect]
     Indication: RENAL CELL CARCINOMA
     Dosage: 50 mg, 1x/day
     Route: 048
     Dates: start: 201205, end: 20120719
  2. SUTENT [Suspect]
     Indication: METASTASES TO PANCREAS
  3. BERODUAL [Concomitant]
     Indication: CHRONIC OBSTRUCTIVE PULMONARY DISEASE
     Dosage: UNK, 2X2 puffs
     Route: 055

REACTIONS (1)
  - Acute myocardial infarction [Recovered/Resolved]
